FAERS Safety Report 4437862-8 (Version None)
Quarter: 2004Q3

REPORT INFORMATION
  Report Type: 
  Country: None (occurrence: None)
  Receive Date: 20040827
  Receipt Date: 20040812
  Transmission Date: 20050211
  Serious: Yes (Other)
  Sender: FDA-Public Use
  Company Number: 2002-04719

PATIENT
  Age: 33 Year
  Sex: Male
  Weight: 68 kg

DRUGS (7)
  1. VIREAD [Suspect]
     Indication: HIV INFECTION
     Dosage: 300 MG, ONCE A DAY, ORAL
     Route: 048
     Dates: start: 20010421, end: 20020429
  2. VIREAD [Suspect]
     Indication: HIV INFECTION
     Dosage: 300 MG, ONCE A DAY, ORAL
     Route: 048
     Dates: start: 20020510, end: 20020620
  3. ABACAVIR (ABACAVIR) [Concomitant]
  4. KALETRA [Concomitant]
  5. AMPRENAVIR (AMPRENAVIR) [Concomitant]
  6. FLUCONAZOLE [Concomitant]
  7. NORVIR [Concomitant]

REACTIONS (7)
  - GLYCOSURIA [None]
  - HYPOPHOSPHATAEMIA [None]
  - LEUKOCYTURIA [None]
  - POLYDIPSIA [None]
  - POLYURIA [None]
  - PROTEINURIA [None]
  - RENAL TUBULAR DISORDER [None]
